FAERS Safety Report 21016996 (Version 2)
Quarter: 2022Q3

REPORT INFORMATION
  Report Type: Spontaneous
  Country: GB (occurrence: GB)
  Receive Date: 20220628
  Receipt Date: 20220721
  Transmission Date: 20221026
  Serious: Yes (Other)
  Sender: FDA-Public Use
  Company Number: GB-MHRA-MED-202206211605108650-ZQRFJ

PATIENT
  Age: 56 Year
  Sex: Female
  Weight: 73 kg

DRUGS (3)
  1. ROPINIROLE [Suspect]
     Active Substance: ROPINIROLE
     Indication: Restless legs syndrome
     Dosage: 1 MG THEN UPPED TO 2MG AND THEN MY GP WANTED TO UP IT TO 3MG
     Route: 065
     Dates: start: 2016, end: 2018
  2. ROPINIROLE [Suspect]
     Active Substance: ROPINIROLE
     Dosage: 1 MILLIGRAM
     Route: 065
  3. ROPINIROLE [Suspect]
     Active Substance: ROPINIROLE
     Dosage: 2 MILLIGRAM
     Route: 065

REACTIONS (2)
  - Restless legs syndrome [Recovered/Resolved with Sequelae]
  - Medication error [Unknown]

NARRATIVE: CASE EVENT DATE: 20160101
